FAERS Safety Report 10457165 (Version 1)
Quarter: 2014Q3

REPORT INFORMATION
  Report Type: Report from Study
  Country: ES (occurrence: ES)
  Receive Date: 20140916
  Receipt Date: 20140916
  Transmission Date: 20150326
  Serious: Yes (Death)
  Sender: FDA-Public Use
  Company Number: ES-ASTRAZENECA-2014SE68302

PATIENT
  Age: 45 Year
  Sex: Male

DRUGS (4)
  1. MORPHINE [Concomitant]
     Active Substance: MORPHINE
  2. QUETIAPINE [Suspect]
     Active Substance: QUETIAPINE
     Route: 048
  3. OXAZEPAM. [Concomitant]
     Active Substance: OXAZEPAM
  4. NORDAZEPAM [Concomitant]
     Active Substance: NORDAZEPAM

REACTIONS (2)
  - Accidental overdose [Fatal]
  - Poisoning [Fatal]
